FAERS Safety Report 24463410 (Version 1)
Quarter: 2024Q4

REPORT INFORMATION
  Report Type: Report from Study
  Country: US (occurrence: US)
  Receive Date: 20241018
  Receipt Date: 20241018
  Transmission Date: 20250114
  Serious: No
  Sender: AGIOS PHARMACEUTICALS
  Company Number: US-AGIOS-2410US03920

PATIENT
  Sex: Female

DRUGS (2)
  1. MITAPIVAT [Suspect]
     Active Substance: MITAPIVAT
     Indication: Pyruvate kinase deficiency anaemia
     Dosage: 5 MILLIGRAM, BID
     Route: 048
     Dates: start: 20230126
  2. MITAPIVAT [Suspect]
     Active Substance: MITAPIVAT
     Dosage: 20 MILLIGRAM
     Route: 065

REACTIONS (2)
  - Bone pain [Unknown]
  - Product dose omission issue [Unknown]
